FAERS Safety Report 6312330-7 (Version None)
Quarter: 2009Q3

REPORT INFORMATION
  Report Type: 
  Country: None (occurrence: None)
  Receive Date: 20090817
  Receipt Date: 20090808
  Transmission Date: 20100115
  Serious: Yes (Other)
  Sender: FDA-Public Use
  Company Number: PHEH2009US09122

PATIENT
  Sex: Male

DRUGS (1)
  1. DIOVAN [Suspect]
     Dosage: 80 MG, UNK
     Route: 065

REACTIONS (8)
  - CONFUSIONAL STATE [None]
  - DECREASED APPETITE [None]
  - DIZZINESS [None]
  - HYPERTENSION [None]
  - NAUSEA [None]
  - SOMNOLENCE [None]
  - TYPE 2 DIABETES MELLITUS [None]
  - WEIGHT DECREASED [None]
